FAERS Safety Report 4468897-7 (Version None)
Quarter: 2004Q4

REPORT INFORMATION
  Report Type: 
  Country: None (occurrence: None)
  Receive Date: 20041005
  Receipt Date: 20041005
  Transmission Date: 20050328
  Serious: Yes (Hospitalization)
  Sender: FDA-Public Use
  Company Number: None

PATIENT
  Age: 60 Year
  Sex: Male
  Weight: 110 kg

DRUGS (1)
  1. CLADRIBINE [Suspect]
     Indication: HAIRY CELL LEUKAEMIA
     Dosage: 70 MG IV 7 DAYS
     Route: 042
     Dates: start: 20040920, end: 20040927

REACTIONS (4)
  - HYPERSENSITIVITY [None]
  - OROPHARYNGEAL SWELLING [None]
  - PYREXIA [None]
  - RASH [None]
